FAERS Safety Report 7367525-0 (Version None)
Quarter: 2011Q1

REPORT INFORMATION
  Report Type: 
  Country: None (occurrence: None)
  Receive Date: 20110322
  Receipt Date: 20100914
  Transmission Date: 20110831
  Serious: Yes (Other)
  Sender: FDA-Public Use
  Company Number: US-BAYER-201029496NA

PATIENT
  Sex: Female
  Weight: 123.81 kg

DRUGS (3)
  1. OCELLA [Suspect]
     Indication: ACNE
     Dosage: UNK
     Dates: start: 20050101, end: 20070101
  2. YAZ [Suspect]
  3. YASMIN [Suspect]
     Dosage: UNK
     Dates: start: 20050101, end: 20070101

REACTIONS (3)
  - CHOLELITHIASIS [None]
  - CHOLECYSTECTOMY [None]
  - CHOLECYSTITIS ACUTE [None]
